FAERS Safety Report 11825573 (Version 2)
Quarter: 2017Q4

REPORT INFORMATION
  Report Type: Spontaneous
  Country: US (occurrence: US)
  Receive Date: 20151211
  Receipt Date: 20171010
  Transmission Date: 20180320
  Serious: Yes (Hospitalization)
  Sender: FDA-Public Use
  Company Number: US-JNJFOC-20150610319

PATIENT
  Age: 73 Year
  Sex: Male

DRUGS (15)
  1. MAGNESIUM [Concomitant]
     Active Substance: MAGNESIUM
  2. AMIODARONE [Concomitant]
     Active Substance: AMIODARONE
  3. ZITHROMAX [Concomitant]
     Active Substance: AZITHROMYCIN DIHYDRATE
  4. TYLENOL [Concomitant]
     Active Substance: ACETAMINOPHEN
  5. IMBRUVICA [Suspect]
     Active Substance: IBRUTINIB
     Indication: WALDENSTROM^S MACROGLOBULINAEMIA
     Route: 048
  6. LEVOTHYROXINE. [Concomitant]
     Active Substance: LEVOTHYROXINE
  7. ATORVASTATIN CALCIUM. [Concomitant]
     Active Substance: ATORVASTATIN CALCIUM
  8. SUCRALFATE. [Concomitant]
     Active Substance: SUCRALFATE
  9. PANTOPRAZOLE [Concomitant]
     Active Substance: PANTOPRAZOLE
  10. PANTOPRAZOLE SODIUM. [Concomitant]
     Active Substance: PANTOPRAZOLE SODIUM
  11. LISINOPRIL. [Concomitant]
     Active Substance: LISINOPRIL
  12. IMBRUVICA [Suspect]
     Active Substance: IBRUTINIB
     Indication: WALDENSTROM^S MACROGLOBULINAEMIA
     Route: 048
     Dates: start: 20150514
  13. BENZONATATE. [Concomitant]
     Active Substance: BENZONATATE
  14. METOPROLOL SUCCINATE. [Concomitant]
     Active Substance: METOPROLOL SUCCINATE
  15. WARFARIN [Concomitant]
     Active Substance: WARFARIN

REACTIONS (6)
  - Night sweats [Unknown]
  - Abdominal pain upper [Unknown]
  - Fatigue [Not Recovered/Not Resolved]
  - Ocular hyperaemia [Unknown]
  - Dehydration [Unknown]
  - Dizziness [Unknown]

NARRATIVE: CASE EVENT DATE: 20150514
